FAERS Safety Report 12821759 (Version 2)
Quarter: 2016Q4

REPORT INFORMATION
  Report Type: Spontaneous
  Country: BE (occurrence: BE)
  Receive Date: 20161007
  Receipt Date: 20161129
  Transmission Date: 20170207
  Serious: Yes (Life-Threatening, Other)
  Sender: FDA-Public Use
  Company Number: BE-SUN PHARMACEUTICAL INDUSTRIES LTD-2016R1-125482

PATIENT
  Age: 52 Year
  Sex: Male

DRUGS (1)
  1. PIROXICAM. [Suspect]
     Active Substance: PIROXICAM
     Indication: PRODUCT USED FOR UNKNOWN INDICATION
     Route: 065

REACTIONS (8)
  - Oral mucosa erosion [Unknown]
  - Lip erosion [Unknown]
  - Perineal ulceration [Unknown]
  - Penile ulceration [Unknown]
  - Scrotal ulcer [Unknown]
  - Erythema multiforme [Unknown]
  - Fixed drug eruption [Unknown]
  - Macule [Unknown]
